FAERS Safety Report 7477600-8 (Version None)
Quarter: 2011Q2

REPORT INFORMATION
  Report Type: 
  Country: None (occurrence: None)
  Receive Date: 20110511
  Receipt Date: 20110511
  Transmission Date: 20111010
  Serious: Yes (Disabling)
  Sender: FDA-Public Use
  Company Number: None

PATIENT
  Age: 54 Year
  Sex: Female
  Weight: 64.8644 kg

DRUGS (2)
  1. FLUOXETINE HYDROCHLORIDE [Suspect]
     Indication: DEPRESSION
     Dosage: 20MG. ONCE A DAY PO
     Route: 048
     Dates: start: 20101001, end: 20110510
  2. FLUOXETINE HYDROCHLORIDE [Suspect]
     Indication: MENOPAUSE
     Dosage: 20MG. ONCE A DAY PO
     Route: 048
     Dates: start: 20101001, end: 20110510

REACTIONS (4)
  - DRUG INEFFECTIVE [None]
  - DEPRESSION [None]
  - CRYING [None]
  - PRODUCT SUBSTITUTION ISSUE [None]
